FAERS Safety Report 18948674 (Version 1)
Quarter: 2021Q1

REPORT INFORMATION
  Report Type: Spontaneous
  Country: US (occurrence: US)
  Receive Date: 20210226
  Receipt Date: 20210226
  Transmission Date: 20210420
  Serious: No
  Sender: FDA-Public Use
  Company Number: US-ROCHE-2376298

PATIENT
  Sex: Female
  Weight: 90.8 kg

DRUGS (1)
  1. XOLAIR [Suspect]
     Active Substance: OMALIZUMAB
     Indication: ASTHMA
     Dosage: BENEATH THE SKIN, USUALLY VIA INJECTION
     Route: 058

REACTIONS (3)
  - Rash [Unknown]
  - Papule [Unknown]
  - Oedema peripheral [Not Recovered/Not Resolved]
